FAERS Safety Report 15020624 (Version 1)
Quarter: 2018Q2

REPORT INFORMATION
  Report Type: Spontaneous
  Country: US (occurrence: US)
  Receive Date: 20180618
  Receipt Date: 20180618
  Transmission Date: 20180711
  Serious: Yes (Hospitalization, Other)
  Sender: FDA-Public Use
  Company Number: PHHY2018US017263

PATIENT
  Age: 50 Year
  Sex: Female

DRUGS (1)
  1. METHADONE [Suspect]
     Active Substance: METHADONE HYDROCHLORIDE
     Indication: PRODUCT USED FOR UNKNOWN INDICATION
     Route: 065

REACTIONS (6)
  - Toxic leukoencephalopathy [Unknown]
  - Confusional state [Unknown]
  - Vision blurred [Unknown]
  - Headache [Unknown]
  - Overdose [Unknown]
  - Unresponsive to stimuli [Recovered/Resolved]
